FAERS Safety Report 7531633-1 (Version None)
Quarter: 2011Q2

REPORT INFORMATION
  Report Type: 
  Country: None (occurrence: None)
  Receive Date: 20110608
  Receipt Date: 20110523
  Transmission Date: 20111010
  Serious: Yes (Hospitalization, Other)
  Sender: FDA-Public Use
  Company Number: US-BAYER-2011-043970

PATIENT
  Age: 18 Year
  Sex: Female
  Weight: 99.773 kg

DRUGS (2)
  1. YAZ [Suspect]
     Indication: PRODUCT USED FOR UNKNOWN INDICATION
     Dosage: UNK
     Dates: start: 20081001
  2. ZANTAC [Concomitant]

REACTIONS (11)
  - DIPLOPIA [None]
  - HEADACHE [None]
  - CEREBRAL THROMBOSIS [None]
  - ANXIETY [None]
  - VOMITING [None]
  - CEREBROVASCULAR ACCIDENT [None]
  - GENERAL PHYSICAL HEALTH DETERIORATION [None]
  - EMOTIONAL DISTRESS [None]
  - INTRACRANIAL VENOUS SINUS THROMBOSIS [None]
  - PAIN [None]
  - INJURY [None]
